FAERS Safety Report 14781150 (Version 2)
Quarter: 2018Q2

REPORT INFORMATION
  Report Type: Report from Study
  Country: US (occurrence: US)
  Receive Date: 20180419
  Receipt Date: 20180518
  Transmission Date: 20180711
  Serious: Yes (Hospitalization)
  Sender: FDA-Public Use
  Company Number: US-VIFOR (INTERNATIONAL) INC.-VIT-2018-01058

PATIENT
  Sex: Female

DRUGS (6)
  1. VELTASSA [Suspect]
     Active Substance: PATIROMER
     Route: 048
     Dates: start: 2018
  2. VELTASSA [Suspect]
     Active Substance: PATIROMER
     Indication: BLOOD POTASSIUM INCREASED
     Dates: start: 20180123
  3. SODIUM BICARBONATE. [Concomitant]
     Active Substance: SODIUM BICARBONATE
  4. VELTASSA [Suspect]
     Active Substance: PATIROMER
     Route: 048
     Dates: start: 201802
  5. RENVELA [Concomitant]
     Active Substance: SEVELAMER CARBONATE
  6. NAMENDA [Concomitant]
     Active Substance: MEMANTINE HYDROCHLORIDE

REACTIONS (13)
  - Inappropriate schedule of drug administration [Unknown]
  - Hip fracture [Recovering/Resolving]
  - Abdominal pain [Not Recovered/Not Resolved]
  - Off label use [Unknown]
  - Product physical issue [Unknown]
  - Fall [Unknown]
  - Abnormal faeces [Not Recovered/Not Resolved]
  - Diarrhoea [Not Recovered/Not Resolved]
  - Musculoskeletal stiffness [Not Recovered/Not Resolved]
  - Eructation [Not Recovered/Not Resolved]
  - Femur fracture [Recovering/Resolving]
  - Abdominal distension [Not Recovered/Not Resolved]
  - Arthralgia [Not Recovered/Not Resolved]

NARRATIVE: CASE EVENT DATE: 2018
